FAERS Safety Report 14154925 (Version 5)
Quarter: 2019Q1

REPORT INFORMATION
  Report Type: Spontaneous
  Country: JP (occurrence: JP)
  Receive Date: 20171102
  Receipt Date: 20190129
  Transmission Date: 20190417
  Serious: Yes (Death, Life-Threatening, Hospitalization, Other)
  Sender: FDA-Public Use
  Company Number: JP-BRISTOL-MYERS SQUIBB COMPANY-BMS-2017-096508

PATIENT
  Age: 58 Year
  Sex: Female
  Weight: 36.6 kg

DRUGS (8)
  1. OPDIVO [Suspect]
     Active Substance: NIVOLUMAB
     Indication: MALIGNANT MELANOMA
     Dosage: UNK
     Route: 065
     Dates: start: 20170303, end: 20170516
  2. PARIET [Concomitant]
     Active Substance: RABEPRAZOLE SODIUM
     Indication: PROPHYLAXIS
     Dosage: 10 MG, QD
     Route: 048
     Dates: start: 20171015, end: 20171024
  3. ZYPREXA [Concomitant]
     Active Substance: OLANZAPINE
     Indication: PROPHYLAXIS
     Dosage: 5 MG, QD
     Route: 048
     Dates: start: 20171010, end: 20171024
  4. YERVOY [Suspect]
     Active Substance: IPILIMUMAB
     Indication: MALIGNANT MELANOMA
     Dosage: 3 MG, Q3WK
     Route: 041
     Dates: start: 20170821, end: 20171002
  5. DICLOFENAC NA [Suspect]
     Active Substance: DICLOFENAC SODIUM
     Indication: MALIGNANT MELANOMA
     Dosage: 37.5 MG, BID
     Route: 048
     Dates: start: 20170925, end: 20171024
  6. BETAMETHASONE. [Suspect]
     Active Substance: BETAMETHASONE
     Indication: MALIGNANT MELANOMA
     Dosage: 1 MG, BID
     Route: 048
     Dates: start: 20171005, end: 20171031
  7. SYMPROIC [Concomitant]
     Active Substance: NALDEMEDINE
     Indication: PROPHYLAXIS
     Dosage: 0.2 MG, QD
     Route: 048
     Dates: start: 20171003, end: 20171024
  8. METHAPAIN [Concomitant]
     Active Substance: METHADONE HYDROCHLORIDE
     Indication: MALIGNANT MELANOMA
     Dosage: 5 MG, BID
     Route: 048
     Dates: start: 20171018, end: 20171024

REACTIONS (5)
  - Sepsis [Not Recovered/Not Resolved]
  - Large intestinal ulcer [Fatal]
  - Diarrhoea [Unknown]
  - Gastrointestinal perforation [Fatal]
  - Malignant neoplasm progression [Fatal]

NARRATIVE: CASE EVENT DATE: 20171017
